FAERS Safety Report 15369512 (Version 7)
Quarter: 2018Q4

REPORT INFORMATION
  Report Type: Spontaneous
  Country: US (occurrence: US)
  Receive Date: 20180911
  Receipt Date: 20181112
  Transmission Date: 20190204
  Serious: No
  Sender: FDA-Public Use
  Company Number: US-PFIZER INC-2018362394

PATIENT
  Age: 75 Year
  Sex: Male

DRUGS (2)
  1. TIKOSYN [Suspect]
     Active Substance: DOFETILIDE
     Dosage: 1125 UG, 2X/DAY (3 CAPS BY MOUTH EVERY 12 HRS)
     Route: 048
  2. TIKOSYN [Suspect]
     Active Substance: DOFETILIDE
     Dosage: 0.125 MG, UNK (QTY 540)

REACTIONS (2)
  - Pain [Unknown]
  - Product use issue [Unknown]
